FAERS Safety Report 18810202 (Version 1)
Quarter: 2021Q1

REPORT INFORMATION
  Report Type: Spontaneous
  Country: US (occurrence: US)
  Receive Date: 20210129
  Receipt Date: 20210129
  Transmission Date: 20210419
  Serious: No
  Sender: FDA-Public Use
  Company Number: US-GW PHARMA-202101USGW00261

PATIENT

DRUGS (24)
  1. EPIDIOLEX [Suspect]
     Active Substance: CANNABIDIOL
     Dosage: UNK (DOSE TITRATED)
     Route: 048
     Dates: start: 202007, end: 202008
  2. EPIDIOLEX [Suspect]
     Active Substance: CANNABIDIOL
     Dosage: 20 MILLIGRAM, QID (NEW BATCH)
     Route: 048
     Dates: start: 20210119, end: 20210122
  3. PERIDEX [CHLORHEXIDINE GLUCONATE] [Concomitant]
     Indication: PRODUCT USED FOR UNKNOWN INDICATION
     Dosage: UNK (ORAL RINSE, FIRST 7 DAYS OF THE MONTH TWICE A DAY)
     Route: 048
  4. EPIDIOLEX [Suspect]
     Active Substance: CANNABIDIOL
     Dosage: 20 MILLIGRAM, QID (INCREASED DOSE)
     Route: 048
     Dates: start: 202008, end: 20210118
  5. LAMICTAL [Concomitant]
     Active Substance: LAMOTRIGINE
     Indication: PRODUCT USED FOR UNKNOWN INDICATION
     Dosage: 62.5 MILLIGRAM, QD (37.5MG IN AM AND 25MG IN EVENING)
     Route: 065
  6. FLAXSEED OIL [LINUM USITATISSIMUM OIL] [Concomitant]
     Indication: PRODUCT USED FOR UNKNOWN INDICATION
     Dosage: 5ML
     Route: 065
  7. EPIDIOLEX [Suspect]
     Active Substance: CANNABIDIOL
     Dosage: 20 MILLIGRAM, BID (RESTARTED)
     Route: 048
     Dates: start: 20210125
  8. ONFI [Concomitant]
     Active Substance: CLOBAZAM
     Indication: PRODUCT USED FOR UNKNOWN INDICATION
     Dosage: 10 MILLIGRAM, BID
     Route: 065
  9. PURE BAKING SODA [Concomitant]
     Active Substance: SODIUM BICARBONATE
     Indication: PRODUCT USED FOR UNKNOWN INDICATION
     Dosage: UNK (1 TEASPOON)
     Route: 065
  10. GLYCOPYRROLATE [GLYCOPYRRONIUM BROMIDE] [Concomitant]
     Active Substance: GLYCOPYRROLATE
     Indication: PRODUCT USED FOR UNKNOWN INDICATION
     Dosage: 5 MILLILITER, PRN
     Route: 065
  11. EPIDIOLEX [Suspect]
     Active Substance: CANNABIDIOL
     Dosage: UNK (HALF THE DOSAGE AND DISCONTINUED)
     Route: 048
     Dates: start: 20210123, end: 20210123
  12. KETOCAL [Concomitant]
     Indication: PRODUCT USED FOR UNKNOWN INDICATION
     Dosage: UNK (2 BOXES A DAY)
     Route: 065
  13. CALCIUM CITRATE [Concomitant]
     Active Substance: CALCIUM CITRATE
     Indication: PRODUCT USED FOR UNKNOWN INDICATION
     Dosage: UNK (2 TEASPOONS)
     Route: 065
  14. XOPENEX [Concomitant]
     Active Substance: LEVALBUTEROL HYDROCHLORIDE
     Indication: PRODUCT USED FOR UNKNOWN INDICATION
     Dosage: 0.63 MILLIGRAM, BID
  15. EPIDIOLEX [Suspect]
     Active Substance: CANNABIDIOL
     Indication: LENNOX-GASTAUT SYNDROME
     Dosage: UNK
     Route: 048
     Dates: start: 201904
  16. SABRIL [Concomitant]
     Active Substance: VIGABATRIN
     Indication: PRODUCT USED FOR UNKNOWN INDICATION
     Dosage: 1500 MILLIGRAM, BID
     Route: 065
  17. DIAZEPAM. [Concomitant]
     Active Substance: DIAZEPAM
     Indication: PRODUCT USED FOR UNKNOWN INDICATION
     Dosage: 10MG (VALTOCO)
     Route: 045
  18. CHILDRENS TYLENOL [Concomitant]
     Active Substance: ACETAMINOPHEN
     Indication: PRODUCT USED FOR UNKNOWN INDICATION
     Dosage: UNK (OTC)
     Route: 065
  19. MULTIVITAMIN [ASCORBIC ACID;BIOTIN;CALCIUM PANTOTHENATE;CYANOCOBALAMIN [Concomitant]
     Active Substance: VITAMINS
     Indication: PRODUCT USED FOR UNKNOWN INDICATION
     Dosage: 12.5MG
     Route: 065
  20. SALT [Concomitant]
     Active Substance: SODIUM CHLORIDE
     Indication: PRODUCT USED FOR UNKNOWN INDICATION
     Dosage: UNK (1/4 TEASPOON OF SALT SUBSTITUTE)
     Route: 065
  21. DIAZEPAM. [Concomitant]
     Active Substance: DIAZEPAM
     Indication: PRODUCT USED FOR UNKNOWN INDICATION
     Dosage: 2 MILLIGRAM, PRN
     Route: 065
  22. CULTURELLE FOR KIDS [INULIN;LACTOBACILLUS RHAMNOSUS] [Concomitant]
     Indication: PRODUCT USED FOR UNKNOWN INDICATION
     Dosage: 1 DOSAGE FORM, QD (KIDS PROBIOTIC CULTURELLE, 1 PACKET EVERY DAY)
     Route: 065
  23. GENTAMICIN. [Concomitant]
     Active Substance: GENTAMICIN
     Indication: PRODUCT USED FOR UNKNOWN INDICATION
     Dosage: 15 MILLILITER, QD (IRRIGATION/FLUSH)
  24. MIRALAX [Concomitant]
     Active Substance: POLYETHYLENE GLYCOL 3350
     Indication: PRODUCT USED FOR UNKNOWN INDICATION
     Dosage: UNK (2.5 TEASPOONS)
     Route: 065

REACTIONS (10)
  - Poor quality sleep [Recovered/Resolved]
  - Product taste abnormal [Unknown]
  - Muscle twitching [Recovered/Resolved]
  - Off label use [Unknown]
  - Therapy interrupted [Unknown]
  - Product quality issue [Unknown]
  - Dyskinesia [Recovered/Resolved]
  - Incorrect dose administered [Unknown]
  - Tremor [Recovered/Resolved]
  - Product odour abnormal [Unknown]

NARRATIVE: CASE EVENT DATE: 20210120
